FAERS Safety Report 4806536-3 (Version None)
Quarter: 2005Q4

REPORT INFORMATION
  Report Type: 
  Country: None (occurrence: None)
  Receive Date: 20051019
  Receipt Date: 20050930
  Transmission Date: 20060501
  Serious: Yes (Other)
  Sender: FDA-Public Use
  Company Number: 54756/ 533

PATIENT
  Sex: Female

DRUGS (1)
  1. LEVONELLE-2 [Suspect]
     Dosage: ORAL
     Route: 048

REACTIONS (3)
  - ABORTION SPONTANEOUS [None]
  - BLIGHTED OVUM [None]
  - DRUG EXPOSURE DURING PREGNANCY [None]
